FAERS Safety Report 20009176 (Version 1)
Quarter: 2021Q4

REPORT INFORMATION
  Report Type: Spontaneous
  Country: RU (occurrence: RU)
  Receive Date: 20211029
  Receipt Date: 20211029
  Transmission Date: 20220303
  Serious: Yes (Other)
  Sender: FDA-Public Use
  Company Number: RU-ROCHE-2933768

PATIENT
  Age: 37 Year
  Sex: Male

DRUGS (1)
  1. TECENTRIQ [Suspect]
     Active Substance: ATEZOLIZUMAB
     Indication: Bladder cancer
     Dosage: DOSE: 1200 MG/ML?13 CYCLES WERE PERFORMED UNTIL 30/MAR/2021
     Route: 041
     Dates: start: 20200715

REACTIONS (3)
  - Thrombocytopenia [Recovered/Resolved]
  - Abdominal pain [Recovered/Resolved]
  - Oropharyngeal pain [Recovered/Resolved]
